FAERS Safety Report 5228013-0 (Version None)
Quarter: 2007Q1

REPORT INFORMATION
  Report Type: 
  Country: None (occurrence: None)
  Receive Date: 20061205
  Receipt Date: 20061002
  Transmission Date: 20070707
  Serious: No
  Sender: FDA-Public Use
  Company Number: PHEH2006US08306

PATIENT
  Age: 46 Year
  Sex: Female
  Weight: 67.1 kg

DRUGS (6)
  1. EXJADE [Suspect]
     Indication: BLOOD IRON INCREASED
     Dosage: SEE IMAGE
     Route: 048
     Dates: start: 20060201, end: 20060410
  2. EXJADE [Suspect]
     Indication: BLOOD IRON INCREASED
     Dosage: SEE IMAGE
     Route: 048
     Dates: start: 20060410, end: 20060508
  3. EFFEXOR [Concomitant]
  4. PROTONIX [Concomitant]
  5. SYNTHROID [Concomitant]
  6. PREMPRO [Concomitant]

REACTIONS (8)
  - ABDOMINAL PAIN [None]
  - ANOREXIA [None]
  - FATIGUE [None]
  - HEARING IMPAIRED [None]
  - HYPOACUSIS [None]
  - HYPOAESTHESIA [None]
  - NAUSEA [None]
  - TENDON DISORDER [None]
